FAERS Safety Report 13069988 (Version 1)
Quarter: 2016Q4

REPORT INFORMATION
  Report Type: Report from Study
  Country: VE (occurrence: VE)
  Receive Date: 20161228
  Receipt Date: 20161228
  Transmission Date: 20170207
  Serious: Yes (Death, Life-Threatening)
  Sender: FDA-Public Use
  Company Number: VE-SA-2016SA234780

PATIENT
  Age: 40 Year
  Sex: Female

DRUGS (12)
  1. TOCILIZUMAB [Suspect]
     Active Substance: TOCILIZUMAB
     Indication: RHEUMATOID ARTHRITIS
     Dosage: PRE FILLED SYRINGE
     Route: 058
     Dates: start: 20160113, end: 20160113
  2. FOLIC ACID. [Concomitant]
     Active Substance: FOLIC ACID
     Route: 048
     Dates: start: 20150408
  3. LEFLUNOMIDE. [Suspect]
     Active Substance: LEFLUNOMIDE
     Indication: RHEUMATOID ARTHRITIS
     Route: 002
     Dates: start: 20141021, end: 20160203
  4. DROSPIRENONE/ETHINYLESTRADIOL [Concomitant]
     Route: 048
  5. TOCILIZUMAB [Suspect]
     Active Substance: TOCILIZUMAB
     Indication: RHEUMATOID ARTHRITIS
     Dosage: PRE FILLED SYRINGE
     Route: 058
     Dates: start: 20160127, end: 20160203
  6. LEFLUNOMIDE. [Suspect]
     Active Substance: LEFLUNOMIDE
     Indication: RHEUMATOID ARTHRITIS
     Route: 002
     Dates: start: 20131012
  7. TOCILIZUMAB [Suspect]
     Active Substance: TOCILIZUMAB
     Indication: RHEUMATOID ARTHRITIS
     Dosage: PRE FILLED SYRINGE
     Route: 058
     Dates: start: 20160120, end: 20160120
  8. DICLOFENAC SODIUM. [Concomitant]
     Active Substance: DICLOFENAC SODIUM
     Dates: start: 20150408, end: 20160203
  9. TOCILIZUMAB [Suspect]
     Active Substance: TOCILIZUMAB
     Indication: RHEUMATOID ARTHRITIS
     Dosage: PRE FILLED SYRINGE
     Route: 058
     Dates: start: 20150408
  10. TOCILIZUMAB [Suspect]
     Active Substance: TOCILIZUMAB
     Indication: RHEUMATOID ARTHRITIS
     Dosage: PRE FILLED SYRINGE
     Route: 058
     Dates: start: 20160106, end: 20160106
  11. PREDNISONE. [Concomitant]
     Active Substance: PREDNISONE
     Route: 048
     Dates: start: 20130311
  12. OMEPRAZOLE. [Concomitant]
     Active Substance: OMEPRAZOLE
     Route: 048
     Dates: start: 20150408

REACTIONS (3)
  - Hepatic enzyme increased [Not Recovered/Not Resolved]
  - Drug-induced liver injury [Fatal]
  - Infection parasitic [Fatal]

NARRATIVE: CASE EVENT DATE: 20160202
